FAERS Safety Report 14942757 (Version 1)
Quarter: 2018Q2

REPORT INFORMATION
  Report Type: Spontaneous
  Country: FR (occurrence: FR)
  Receive Date: 20180528
  Receipt Date: 20180528
  Transmission Date: 20180711
  Serious: Yes (Other)
  Sender: FDA-Public Use
  Company Number: FR-MERCK KGAA-2048532

PATIENT
  Age: 49 Year
  Sex: Male

DRUGS (1)
  1. NOVOTHYROX [Suspect]
     Active Substance: LEVOTHYROXINE SODIUM
     Indication: PRODUCT USED FOR UNKNOWN INDICATION
     Dates: end: 2017

REACTIONS (23)
  - Irritability [None]
  - Oedema peripheral [None]
  - Thyroxine free decreased [None]
  - Depression [None]
  - Nervousness [None]
  - Anxiety [None]
  - Blood thyroid stimulating hormone increased [Recovered/Resolved]
  - Rhinotracheitis [None]
  - White blood cells urine positive [None]
  - Arthralgia [None]
  - Decreased appetite [None]
  - Renal pain [None]
  - Headache [None]
  - Blood creatinine increased [None]
  - Pain in extremity [None]
  - Personal relationship issue [None]
  - Flank pain [None]
  - Weight decreased [None]
  - Hypogammaglobulinaemia [None]
  - Fatigue [None]
  - Gait disturbance [None]
  - Aggression [None]
  - Social avoidant behaviour [None]

NARRATIVE: CASE EVENT DATE: 201707
